FAERS Safety Report 5330926-6 (Version None)
Quarter: 2007Q2

REPORT INFORMATION
  Report Type: 
  Country: None (occurrence: None)
  Receive Date: 20070522
  Receipt Date: 20070502
  Transmission Date: 20071010
  Serious: Yes (Other)
  Sender: FDA-Public Use
  Company Number: US-ASTRAZENECA-2006UW02285

PATIENT
  Age: 50 Year
  Sex: Male
  Weight: 59.4 kg

DRUGS (2)
  1. SEROQUEL [Suspect]
     Indication: BIPOLAR DISORDER
     Route: 048
     Dates: start: 20030201, end: 20050731
  2. SEROQUEL [Suspect]
     Indication: BIPOLAR I DISORDER
     Route: 048
     Dates: start: 20030201, end: 20050731

REACTIONS (5)
  - ABNORMAL SLEEP-RELATED EVENT [None]
  - ANGER [None]
  - DIABETES MELLITUS NON-INSULIN-DEPENDENT [None]
  - MANIA [None]
  - RESTLESS LEGS SYNDROME [None]
